FAERS Safety Report 18493271 (Version 2)
Quarter: 2020Q4

REPORT INFORMATION
  Report Type: Spontaneous
  Country: US (occurrence: US)
  Receive Date: 20201112
  Receipt Date: 20201202
  Transmission Date: 20210114
  Serious: Yes (Hospitalization, Other)
  Sender: FDA-Public Use
  Company Number: US-ROCHE-2707857

PATIENT
  Age: 31 Year
  Sex: Female

DRUGS (24)
  1. MORPHINE [Concomitant]
     Active Substance: MORPHINE
     Dosage: DAY 1, DAY 8, EVERY 21 DAYS
     Route: 048
  2. SENOKOT [Concomitant]
     Active Substance: SENNOSIDES
     Route: 048
  3. XELODA [Suspect]
     Active Substance: CAPECITABINE
     Indication: BREAST CANCER METASTATIC
     Route: 048
  4. PERJETA [Suspect]
     Active Substance: PERTUZUMAB
     Indication: BREAST CANCER METASTATIC
     Route: 065
     Dates: start: 20161104, end: 20180216
  5. ERIBULIN [Concomitant]
     Active Substance: ERIBULIN
     Dosage: DAY 1, DAY 8, EVERY 21 DAYS
  6. EXEMESTANE. [Concomitant]
     Active Substance: EXEMESTANE
     Dates: start: 20161104
  7. ZOFRAN [Concomitant]
     Active Substance: ONDANSETRON HYDROCHLORIDE
     Route: 048
  8. CURCUMIN [Concomitant]
     Active Substance: CURCUMIN
  9. KADCYLA [Suspect]
     Active Substance: ADO-TRASTUZUMAB EMTANSINE
     Indication: BREAST CANCER METASTATIC
     Route: 065
     Dates: start: 20180621, end: 20180824
  10. DECADRON [Concomitant]
     Active Substance: DEXAMETHASONE
     Route: 048
  11. MEDICAL MARIJUANA [Concomitant]
     Active Substance: CANNABIS SATIVA SUBSP. INDICA TOP
     Dosage: AS NEEDED
  12. VALTREX [Concomitant]
     Active Substance: VALACYCLOVIR HYDROCHLORIDE
     Route: 048
  13. LETROZOLE. [Concomitant]
     Active Substance: LETROZOLE
  14. HERCEPTIN [Suspect]
     Active Substance: TRASTUZUMAB
     Indication: BREAST CANCER METASTATIC
     Dosage: ADMINISTER INTO THE VEIN EVERY 21 DAYS
     Route: 042
     Dates: start: 20131024, end: 20141107
  15. HERCEPTIN [Suspect]
     Active Substance: TRASTUZUMAB
     Indication: BREAST CANCER METASTATIC
     Route: 065
     Dates: start: 20161104, end: 20180216
  16. PROTONIX [Concomitant]
     Active Substance: PANTOPRAZOLE SODIUM
     Route: 048
  17. LUPRON DEPOT [Concomitant]
     Active Substance: LEUPROLIDE ACETATE
     Dates: start: 20161104
  18. TUCATINIB [Concomitant]
     Active Substance: TUCATINIB
  19. POLYETHYLENE GLYCOL [Concomitant]
     Active Substance: POLYETHYLENE GLYCOLS
     Dosage: POWDER PACKET
  20. PARAGARD T 380A [Concomitant]
     Active Substance: COPPER
     Route: 015
  21. PALBOCICLIB [Concomitant]
     Active Substance: PALBOCICLIB
  22. AUGMENTIN [Concomitant]
     Active Substance: AMOXICILLIN\CLAVULANATE POTASSIUM
     Dosage: 875-125 MG PER TABLET
     Route: 048
  23. XGEVA [Concomitant]
     Active Substance: DENOSUMAB
     Dosage: INJECT 120 MG INTO THE SKIN EVERY 3 MONTHS
     Route: 058
  24. TAMOXIFEN [Concomitant]
     Active Substance: TAMOXIFEN
     Dates: start: 201312

REACTIONS (13)
  - Granuloma [Unknown]
  - Pain [Recovered/Resolved]
  - Hilar lymphadenopathy [Unknown]
  - Fibrosis [Unknown]
  - Mass [Unknown]
  - Fat necrosis [Unknown]
  - Lymphadenopathy mediastinal [Unknown]
  - Hypermetabolism [Unknown]
  - Chest pain [Unknown]
  - Lung opacity [Unknown]
  - Haemoptysis [Recovered/Resolved]
  - Headache [Unknown]
  - Bronchial obstruction [Unknown]
